FAERS Safety Report 5057197-2 (Version None)
Quarter: 2006Q3

REPORT INFORMATION
  Report Type: 
  Country: None (occurrence: None)
  Receive Date: 20060721
  Receipt Date: 20050606
  Transmission Date: 20061208
  Serious: No
  Sender: FDA-Public Use
  Company Number: US-GLAXOSMITHKLINE-A0561403A

PATIENT
  Age: 72 Year
  Sex: Male

DRUGS (12)
  1. AVANDIA [Suspect]
     Dosage: 4MG TWICE PER DAY
     Route: 048
  2. AMARYL [Concomitant]
     Route: 065
  3. GLYSET [Concomitant]
  4. VERAPAMIL [Concomitant]
     Route: 065
  5. LIPITOR [Concomitant]
  6. LISINOPRIL [Concomitant]
  7. FOLTX [Concomitant]
  8. NIFEREX [Concomitant]
     Route: 065
  9. MULTI-VITAMIN [Concomitant]
  10. FISH OIL [Concomitant]
  11. UROXATRAL [Concomitant]
  12. PROCRIT [Concomitant]

REACTIONS (1)
  - OEDEMA PERIPHERAL [None]
